FAERS Safety Report 8474239-2 (Version None)
Quarter: 2012Q2

REPORT INFORMATION
  Report Type: 
  Country: None (occurrence: None)
  Receive Date: 20120628
  Receipt Date: 20120620
  Transmission Date: 20120825
  Serious: Yes (Hospitalization, Other)
  Sender: FDA-Public Use
  Company Number: US-BAYER-2011-122105

PATIENT
  Age: 22 Year
  Sex: Female

DRUGS (2)
  1. NSAID'S [Concomitant]
     Dosage: UNK UNK, PRN
     Dates: start: 20060301
  2. YASMIN [Suspect]
     Dosage: UNK
     Dates: start: 20050401, end: 20051001

REACTIONS (8)
  - CHOLECYSTITIS CHRONIC [None]
  - GENERAL PHYSICAL HEALTH DETERIORATION [None]
  - ANXIETY [None]
  - PANCREATITIS [None]
  - EMOTIONAL DISTRESS [None]
  - ANHEDONIA [None]
  - PAIN [None]
  - GALLBLADDER INJURY [None]
